FAERS Safety Report 23849940 (Version 1)
Quarter: 2024Q2

REPORT INFORMATION
  Report Type: Spontaneous
  Country: US (occurrence: None)
  Receive Date: 20240513
  Receipt Date: 20240513
  Transmission Date: 20240715
  Serious: Yes (Hospitalization)
  Sender: FDA-Public Use
  Company Number: None

PATIENT
  Age: 33 Year
  Sex: Male
  Weight: 83 kg

DRUGS (1)
  1. OLANZAPINE [Suspect]
     Active Substance: OLANZAPINE
     Indication: Agitation
     Dosage: OTHER FREQUENCY : OTHER;?
     Route: 048
     Dates: start: 20181231, end: 20190101

REACTIONS (1)
  - Hypotension [None]

NARRATIVE: CASE EVENT DATE: 20190101
